FAERS Safety Report 7829528-9 (Version None)
Quarter: 2011Q4

REPORT INFORMATION
  Report Type: 
  Country: None (occurrence: None)
  Receive Date: 20111020
  Receipt Date: 20111013
  Transmission Date: 20120403
  Serious: Yes (Other)
  Sender: FDA-Public Use
  Company Number: JP-MERCK-1106USA03384

PATIENT
  Age: 28 Year
  Sex: Female

DRUGS (4)
  1. PEPCID RPD [Suspect]
     Route: 048
     Dates: start: 20110618, end: 20110618
  2. STROCAIN (OXETHAZAINE) [Concomitant]
     Indication: GASTRIC ULCER
     Route: 048
     Dates: start: 20110617, end: 20110618
  3. MUCOSTA [Concomitant]
     Indication: GASTRIC ULCER
     Route: 048
     Dates: start: 20110617, end: 20110618
  4. PEPCID RPD [Suspect]
     Indication: GASTRIC ULCER
     Route: 048
     Dates: start: 20110617, end: 20110617

REACTIONS (2)
  - DYSPNOEA [None]
  - URTICARIA [None]
